FAERS Safety Report 7548047-0 (Version None)
Quarter: 2011Q2

REPORT INFORMATION
  Report Type: 
  Country: None (occurrence: None)
  Receive Date: 20110608
  Receipt Date: 20110524
  Transmission Date: 20111010
  Serious: Yes (Other)
  Sender: FDA-Public Use
  Company Number: AUR-APL-2011-01852

PATIENT
  Age: 4 Year
  Sex: Female

DRUGS (2)
  1. DIORALYTE [Concomitant]
  2. AMOXICILLIN [Suspect]
     Dates: start: 20110409

REACTIONS (2)
  - DRUG INTOLERANCE [None]
  - HYPERSENSITIVITY [None]
